FAERS Safety Report 6581570-4 (Version None)
Quarter: 2010Q1

REPORT INFORMATION
  Report Type: 
  Country: None (occurrence: None)
  Receive Date: 20100211
  Receipt Date: 20100211
  Transmission Date: 20100710
  Serious: No
  Sender: FDA-Public Use
  Company Number: None

PATIENT
  Age: 22 Year
  Sex: Female
  Weight: 81.6475 kg

DRUGS (1)
  1. MIRENA [Suspect]

REACTIONS (4)
  - COLD SWEAT [None]
  - DEVICE DISLOCATION [None]
  - DIZZINESS [None]
  - PAIN [None]
